FAERS Safety Report 21874738 (Version 2)
Quarter: 2023Q1

REPORT INFORMATION
  Report Type: Spontaneous
  Country: US (occurrence: None)
  Receive Date: 20230117
  Receipt Date: 20230223
  Transmission Date: 20230417
  Serious: No
  Sender: FDA-Public Use
  Company Number: 2023A004148

PATIENT
  Age: 822 Month
  Sex: Female
  Weight: 90.7 kg

DRUGS (12)
  1. EVUSHELD [Suspect]
     Active Substance: CILGAVIMAB\TIXAGEVIMAB
     Indication: Immune system disorder
     Dosage: 150.0MG UNKNOWN
     Route: 030
     Dates: start: 202201
  2. EVUSHELD [Suspect]
     Active Substance: CILGAVIMAB\TIXAGEVIMAB
     Indication: Adverse reaction
     Dosage: 150.0MG UNKNOWN
     Route: 030
     Dates: start: 202201
  3. EVUSHELD [Suspect]
     Active Substance: CILGAVIMAB\TIXAGEVIMAB
     Indication: Autoimmune disorder
     Dosage: 150.0MG UNKNOWN
     Route: 030
     Dates: start: 202201
  4. EVUSHELD [Suspect]
     Active Substance: CILGAVIMAB\TIXAGEVIMAB
     Indication: DNA antibody
     Dosage: 150.0MG UNKNOWN
     Route: 030
     Dates: start: 202201
  5. EVUSHELD [Suspect]
     Active Substance: CILGAVIMAB\TIXAGEVIMAB
     Indication: Immune system disorder
     Dosage: 150.0MG UNKNOWN
     Route: 030
     Dates: start: 202208
  6. EVUSHELD [Suspect]
     Active Substance: CILGAVIMAB\TIXAGEVIMAB
     Indication: Adverse reaction
     Dosage: 150.0MG UNKNOWN
     Route: 030
     Dates: start: 202208
  7. EVUSHELD [Suspect]
     Active Substance: CILGAVIMAB\TIXAGEVIMAB
     Indication: Autoimmune disorder
     Dosage: 150.0MG UNKNOWN
     Route: 030
     Dates: start: 202208
  8. EVUSHELD [Suspect]
     Active Substance: CILGAVIMAB\TIXAGEVIMAB
     Indication: DNA antibody
     Dosage: 150.0MG UNKNOWN
     Route: 030
     Dates: start: 202208
  9. EVUSHELD [Suspect]
     Active Substance: CILGAVIMAB\TIXAGEVIMAB
     Indication: Immune system disorder
     Dosage: 150.0MG UNKNOWN
     Route: 030
     Dates: start: 202209
  10. EVUSHELD [Suspect]
     Active Substance: CILGAVIMAB\TIXAGEVIMAB
     Indication: Adverse reaction
     Dosage: 150.0MG UNKNOWN
     Route: 030
     Dates: start: 202209
  11. EVUSHELD [Suspect]
     Active Substance: CILGAVIMAB\TIXAGEVIMAB
     Indication: Autoimmune disorder
     Dosage: 150.0MG UNKNOWN
     Route: 030
     Dates: start: 202209
  12. EVUSHELD [Suspect]
     Active Substance: CILGAVIMAB\TIXAGEVIMAB
     Indication: DNA antibody
     Dosage: 150.0MG UNKNOWN
     Route: 030
     Dates: start: 202209

REACTIONS (4)
  - Inflammation [Unknown]
  - Synovitis [Unknown]
  - Headache [Unknown]
  - Underdose [Unknown]

NARRATIVE: CASE EVENT DATE: 20220101
